FAERS Safety Report 14895544 (Version 1)
Quarter: 2018Q2

REPORT INFORMATION
  Report Type: Report from Study
  Country: CL (occurrence: CL)
  Receive Date: 20180515
  Receipt Date: 20180515
  Transmission Date: 20180711
  Serious: Yes (Other)
  Sender: FDA-Public Use
  Company Number: PHHY2014CL048314

PATIENT
  Age: 84 Year
  Sex: Female

DRUGS (3)
  1. GLIVEC [Suspect]
     Active Substance: IMATINIB MESYLATE
     Indication: PHILADELPHIA CHROMOSOME POSITIVE
     Dosage: 400 MG, QD
     Route: 065
  2. ERYTHROPOIETIN [Suspect]
     Active Substance: ERYTHROPOIETIN
     Indication: PRODUCT USED FOR UNKNOWN INDICATION
     Dosage: 8000 OT, QW
     Route: 065
  3. GLIVEC [Suspect]
     Active Substance: IMATINIB MESYLATE
     Indication: ACUTE LYMPHOCYTIC LEUKAEMIA
     Dosage: 600 MG, UNK
     Route: 065
     Dates: start: 20130823

REACTIONS (8)
  - Immune system disorder [Unknown]
  - Diarrhoea [Recovered/Resolved]
  - Leukoencephalopathy [Unknown]
  - Fall [Unknown]
  - Hyponatraemia [Unknown]
  - Aspergillus infection [Unknown]
  - Eye infection fungal [Unknown]
  - Oedema [Unknown]

NARRATIVE: CASE EVENT DATE: 20150222
